FAERS Safety Report 5796871-7 (Version None)
Quarter: 2008Q2

REPORT INFORMATION
  Report Type: 
  Country: None (occurrence: None)
  Receive Date: 20080618
  Receipt Date: 20070521
  Transmission Date: 20081010
  Serious: Yes (Other)
  Sender: FDA-Public Use
  Company Number: 200713576US

PATIENT
  Age: 52 Year
  Sex: Female

DRUGS (14)
  1. LANTUS [Suspect]
     Indication: TYPE 2 DIABETES MELLITUS
     Dates: start: 20070501
  2. LANTUS [Suspect]
     Indication: TYPE 2 DIABETES MELLITUS
     Dosage: 50 U HS
     Dates: start: 20070511
  3. LANTUS [Suspect]
     Indication: TYPE 2 DIABETES MELLITUS
     Dosage: 52 U HS
  4. LANTUS [Suspect]
     Indication: TYPE 2 DIABETES MELLITUS
     Dosage: 54 U HS
  5. LANTUS [Suspect]
     Indication: TYPE 2 DIABETES MELLITUS
     Dosage: 56 U HS
  6. OPTICLIK [Suspect]
     Indication: TYPE 2 DIABETES MELLITUS
  7. HUMALOG [Concomitant]
  8. METFORMIN HCL [Concomitant]
  9. HYDROCHLOROTHIAZIDE, LOSARTAN POTASSIUM (HYZAAR) [Concomitant]
  10. LOPID [Concomitant]
  11. BUPROPION (WELLBUTRIN /00700501/) [Concomitant]
  12. SOLIFENACIN (VESICARE /01735901/) [Concomitant]
  13. ARIMIDEX [Concomitant]
  14. MONTELUKAST SODIUM [Concomitant]

REACTIONS (5)
  - BLOOD GLUCOSE DECREASED [None]
  - FEELING HOT [None]
  - HYPERHIDROSIS [None]
  - HYPOGLYCAEMIA [None]
  - NERVOUSNESS [None]
